FAERS Safety Report 5088877-0 (Version None)
Quarter: 2006Q3

REPORT INFORMATION
  Report Type: 
  Country: None (occurrence: None)
  Receive Date: 20060824
  Receipt Date: 20060824
  Transmission Date: 20061208
  Serious: Yes (Life-Threatening, Hospitalization)
  Sender: FDA-Public Use
  Company Number: None

PATIENT
  Sex: Male
  Weight: 90.7194 kg

DRUGS (1)
  1. CITANEST [Suspect]
     Dosage: 2 CARPULES 4%
     Dates: start: 20060131

REACTIONS (2)
  - CARDIAC ARREST [None]
  - TREMOR [None]
